FAERS Safety Report 15696916 (Version 2)
Quarter: 2022Q2

REPORT INFORMATION
  Report Type: Spontaneous
  Country: US (occurrence: US)
  Receive Date: 20181206
  Receipt Date: 20220418
  Transmission Date: 20220721
  Serious: No
  Sender: FDA-Public Use
  Company Number: US-PFIZER INC-2018495991

PATIENT
  Age: 76 Year
  Sex: Female
  Weight: 58.05 kg

DRUGS (1)
  1. ATORVASTATIN CALCIUM [Suspect]
     Active Substance: ATORVASTATIN CALCIUM
     Dosage: 20 MG (90 TABLETS)

REACTIONS (2)
  - Muscle spasms [Unknown]
  - Drug ineffective [Unknown]
